FAERS Safety Report 6317737-X (Version None)
Quarter: 2009Q3

REPORT INFORMATION
  Report Type: 
  Country: None (occurrence: None)
  Receive Date: 20090821
  Receipt Date: 20090813
  Transmission Date: 20100115
  Serious: Yes (Other)
  Sender: FDA-Public Use
  Company Number: PHHY2009CA34063

PATIENT
  Age: 70 Year
  Sex: Female

DRUGS (3)
  1. VOLTAREN [Suspect]
     Indication: CATARACT OPERATION
     Dosage: 1 DF, QID
  2. VIGAMOX [Concomitant]
  3. PREDNISOLONE [Concomitant]

REACTIONS (6)
  - ASTHMA [None]
  - DYSPNOEA [None]
  - EYE PRURITUS [None]
  - HYPERSENSITIVITY [None]
  - NASAL CONGESTION [None]
  - SNEEZING [None]
